FAERS Safety Report 20675134 (Version 1)
Quarter: 2022Q2

REPORT INFORMATION
  Report Type: Spontaneous
  Country: US (occurrence: US)
  Receive Date: 20220405
  Receipt Date: 20220405
  Transmission Date: 20220721
  Serious: Yes (Other)
  Sender: FDA-Public Use
  Company Number: US-PFIZER INC-202200474423

PATIENT
  Age: 67 Year
  Sex: Female
  Weight: 82.1 kg

DRUGS (1)
  1. METHOTREXATE SODIUM [Suspect]
     Active Substance: METHOTREXATE SODIUM
     Dosage: 0.8 ML (0.8 ML FOR EACH DOSE, AND THE VIAL CONTAINS 2 ML)

REACTIONS (5)
  - Autoimmune disorder [Unknown]
  - Product use in unapproved therapeutic environment [Unknown]
  - Product use issue [Unknown]
  - Product storage error [Unknown]
  - Product temperature excursion issue [Unknown]
